FAERS Safety Report 24769865 (Version 1)
Quarter: 2024Q4

REPORT INFORMATION
  Report Type: Spontaneous
  Country: FR (occurrence: FR)
  Receive Date: 20241224
  Receipt Date: 20241224
  Transmission Date: 20250114
  Serious: Yes (Other)
  Sender: AUROBINDO
  Company Number: FR-ROCHE-10000145384

PATIENT
  Age: 77 Year
  Sex: Female
  Weight: 55 kg

DRUGS (43)
  1. DOXORUBICIN [Suspect]
     Active Substance: DOXORUBICIN
     Indication: Diffuse large B-cell lymphoma
     Dosage: 80 MILLIGRAM (3 WEEK) (ON 12-SEP-2024 SHE RECEIVED MOST RECENT DOSE OF DOXORUBICIN (80 MG) PRIOR TO
     Route: 042
     Dates: start: 20240802
  2. PREDNISONE [Suspect]
     Active Substance: PREDNISONE
     Indication: Diffuse large B-cell lymphoma
     Dosage: 100 MILLIGRAM (3 WEEK) (ON 16-SEP-2024, SHE RECEIVED MOST RECENT DOSE OF PREDNISONE (100 MG) PRIOR T
     Route: 048
     Dates: start: 20240802
  3. POLATUZUMAB VEDOTIN [Suspect]
     Active Substance: POLATUZUMAB VEDOTIN
     Indication: Diffuse large B-cell lymphoma
     Dosage: 104 MILLIGRAM (3 WEEK) (ON 12-SEP-2024 SHE RECEIVED MOST RECENT DOSE OF POLATUZUMAB VEDOTIN (104 MG)
     Route: 042
     Dates: start: 20240803
  4. CYCLOPHOSPHAMIDE [Suspect]
     Active Substance: CYCLOPHOSPHAMIDE
     Indication: Diffuse large B-cell lymphoma
     Dosage: 1200 MILLIGRAM (3 WEEK) (ON 12-SEP-2024 SHE RECEIVED MOST RECENT DOSE OF CYCLOPHOSPHAMIDE (1200 MG)
     Route: 042
     Dates: start: 20240802
  5. RITUXIMAB [Concomitant]
     Active Substance: RITUXIMAB
     Indication: Diffuse large B-cell lymphoma
     Dosage: 600 MILLIGRAM (3 WEEK) (ON 12-SEP-2024 SHE RECEIVED MOST RECENT DOSE OF RITUXIMAB (600 MG) PRIOR TO
     Route: 042
     Dates: start: 20240802
  6. BILASTINE [Concomitant]
     Active Substance: BILASTINE
     Indication: Hypersensitivity
     Dosage: 20 MILLIGRAM, ONCE A DAY
     Route: 048
     Dates: start: 202407
  7. Previscan [Concomitant]
     Indication: Product used for unknown indication
     Dosage: 20 MILLIGRAM, ONCE A DAY
     Route: 048
     Dates: start: 202407
  8. ALBUTEROL [Concomitant]
     Active Substance: ALBUTEROL
     Indication: Asthma
     Dosage: UNK UNK, AS NECESSARY  (DRUG DOSE FIRST ADMINISTERED IS 1 INHALATION)
     Dates: start: 202407
  9. SERETIDE [Concomitant]
     Active Substance: FLUTICASONE PROPIONATE\SALMETEROL XINAFOATE
     Indication: Asthma
     Dosage: 500 MICROGRAM, ONCE A DAY
     Route: 048
     Dates: start: 202407
  10. BACLOFEN [Concomitant]
     Active Substance: BACLOFEN
     Indication: Hemiplegia
     Dosage: 10 MILLIGRAM, ONCE A DAY
     Route: 048
     Dates: start: 202407
  11. ATORVASTATIN [Concomitant]
     Active Substance: ATORVASTATIN
     Indication: Dyslipidaemia
     Dosage: 10 MILLIGRAM, ONCE A DAY
     Route: 048
     Dates: start: 202407
  12. LERCANIDIPINE [Concomitant]
     Active Substance: LERCANIDIPINE
     Indication: Hypertension
     Dosage: 10 MILLIGRAM, ONCE A DAY
     Route: 048
     Dates: start: 202407
  13. TIOTROPIUM [Concomitant]
     Active Substance: TIOTROPIUM
     Indication: Pulmonary embolism
     Dosage: UNK (DRUG DOSE FIRST ADMINISTERED IS 2.5 INHALATION)
     Dates: start: 202407
  14. TRAMADOL [Concomitant]
     Active Substance: TRAMADOL
     Indication: Product used for unknown indication
     Dosage: 100 MILLIGRAM, ONCE A DAY
     Route: 048
     Dates: start: 202407
  15. INDAPAMIDE\PERINDOPRIL ERBUMINE [Concomitant]
     Active Substance: INDAPAMIDE\PERINDOPRIL ERBUMINE
     Indication: Hypertension
     Dosage: 4 MILLIGRAM, ONCE A DAY
     Route: 048
     Dates: start: 202407
  16. ESOMEPRAZOLE [Concomitant]
     Active Substance: ESOMEPRAZOLE
     Indication: Product used for unknown indication
     Dosage: 40 MILLIGRAM, ONCE A DAY
     Route: 048
     Dates: start: 202407
  17. CLORAZEPATE DIPOTASSIUM [Concomitant]
     Active Substance: CLORAZEPATE DIPOTASSIUM
     Indication: Anxiety
     Dosage: 5 MILLIGRAM, ONCE A DAY
     Route: 048
     Dates: start: 202407
  18. LACTULOSE [Concomitant]
     Active Substance: LACTULOSE
     Indication: Constipation
     Dosage: 10 MILLIGRAM, EVERY WEEK
     Route: 048
     Dates: start: 202407
  19. ACETAMINOPHEN [Concomitant]
     Active Substance: ACETAMINOPHEN
     Indication: Product used for unknown indication
     Dosage: 500 MILLIGRAM, ONCE A DAY
     Route: 048
     Dates: start: 20240802, end: 20240802
  20. ACETAMINOPHEN [Concomitant]
     Active Substance: ACETAMINOPHEN
     Dosage: 500 MILLIGRAM, ONCE A DAY
     Route: 048
     Dates: start: 20240822, end: 20240822
  21. ACETAMINOPHEN [Concomitant]
     Active Substance: ACETAMINOPHEN
     Dosage: 500 MILLIGRAM, ONCE A DAY
     Route: 048
     Dates: start: 20241010, end: 20241010
  22. ACETAMINOPHEN [Concomitant]
     Active Substance: ACETAMINOPHEN
     Dosage: 500 MILLIGRAM, ONCE A DAY
     Route: 048
     Dates: start: 20241031, end: 20241031
  23. ACETAMINOPHEN [Concomitant]
     Active Substance: ACETAMINOPHEN
     Dosage: 500 MILLIGRAM, ONCE A DAY
     Route: 048
     Dates: start: 20241121, end: 20241121
  24. ACETAMINOPHEN [Concomitant]
     Active Substance: ACETAMINOPHEN
     Dosage: 500 MILLIGRAM, ONCE A DAY
     Route: 048
     Dates: start: 20240912, end: 20240912
  25. DEXCHLORPHENIRAMINE [Concomitant]
     Active Substance: DEXCHLORPHENIRAMINE
     Indication: Product used for unknown indication
     Dosage: 5 MILLIGRAM, ONCE A DAY
     Route: 042
     Dates: start: 20240802, end: 20240802
  26. DEXCHLORPHENIRAMINE [Concomitant]
     Active Substance: DEXCHLORPHENIRAMINE
     Dosage: 5 MILLIGRAM, ONCE A DAY
     Route: 042
     Dates: start: 20240822, end: 20240822
  27. DEXCHLORPHENIRAMINE [Concomitant]
     Active Substance: DEXCHLORPHENIRAMINE
     Dosage: 5 MILLIGRAM, ONCE A DAY
     Route: 042
     Dates: start: 20240912, end: 20240912
  28. DEXCHLORPHENIRAMINE [Concomitant]
     Active Substance: DEXCHLORPHENIRAMINE
     Dosage: 5 MILLIGRAM, ONCE A DAY
     Route: 042
     Dates: start: 20241010, end: 20241010
  29. DEXCHLORPHENIRAMINE [Concomitant]
     Active Substance: DEXCHLORPHENIRAMINE
     Dosage: 5 MILLIGRAM, ONCE A DAY
     Route: 042
     Dates: start: 20241031, end: 20241031
  30. DEXCHLORPHENIRAMINE [Concomitant]
     Active Substance: DEXCHLORPHENIRAMINE
     Dosage: 5 MILLIGRAM, ONCE A DAY
     Route: 042
     Dates: start: 20241121, end: 20241121
  31. ONDANSETRON [Concomitant]
     Active Substance: ONDANSETRON
     Indication: Product used for unknown indication
     Dosage: 8 MILLIGRAM, ONCE A DAY
     Route: 042
     Dates: start: 20240802, end: 20240802
  32. ONDANSETRON [Concomitant]
     Active Substance: ONDANSETRON
     Dosage: 8 MILLIGRAM, ONCE A DAY
     Route: 042
     Dates: start: 20240822, end: 20240822
  33. ONDANSETRON [Concomitant]
     Active Substance: ONDANSETRON
     Dosage: 8 MILLIGRAM, ONCE A DAY
     Route: 042
     Dates: start: 20240912, end: 20240912
  34. ONDANSETRON [Concomitant]
     Active Substance: ONDANSETRON
     Dosage: 8 MILLIGRAM, ONCE A DAY
     Route: 042
     Dates: start: 20241010, end: 20241010
  35. ONDANSETRON [Concomitant]
     Active Substance: ONDANSETRON
     Dosage: 8 MILLIGRAM, ONCE A DAY
     Route: 042
     Dates: start: 20241031, end: 20241031
  36. ONDANSETRON [Concomitant]
     Active Substance: ONDANSETRON
     Dosage: 8 MILLIGRAM, ONCE A DAY
     Route: 042
     Dates: start: 20241121, end: 20241121
  37. PRIMPERAN [Concomitant]
     Active Substance: METOCLOPRAMIDE HYDROCHLORIDE
     Indication: Product used for unknown indication
     Dosage: 10 MILLIGRAM, ONCE A DAY
     Route: 048
     Dates: start: 202408
  38. PAROXETINE [Concomitant]
     Active Substance: PAROXETINE
     Indication: Anxiety
     Dosage: 20 MILLIGRAM, ONCE A DAY
     Route: 048
     Dates: start: 20240802, end: 20240802
  39. GABAPENTIN [Concomitant]
     Active Substance: GABAPENTIN
     Indication: Paraesthesia
     Dosage: 300 MILLIGRAM (0.33 DAYS)
     Route: 048
     Dates: start: 20240912
  40. AMITRIPTYLINE HYDROCHLORIDE [Concomitant]
     Active Substance: AMITRIPTYLINE HYDROCHLORIDE
     Indication: Paraesthesia
     Dosage: UNK UNK, ONCE A DAY (DOSE: 5 GTT)
     Route: 048
     Dates: start: 20240912
  41. VALACYCLOVIR HYDROCHLORIDE [Concomitant]
     Active Substance: VALACYCLOVIR HYDROCHLORIDE
     Indication: Product used for unknown indication
     Dosage: 500 MILLIGRAM, ONCE A DAY
     Route: 048
     Dates: start: 20241003
  42. BACTRIM [Concomitant]
     Active Substance: SULFAMETHOXAZOLE\TRIMETHOPRIM
     Indication: Product used for unknown indication
     Dosage: 800 MILLIGRAM, ONCE A DAY
     Route: 048
     Dates: start: 20241003
  43. PAXLOVID [Concomitant]
     Active Substance: NIRMATRELVIR\RITONAVIR
     Indication: COVID-19
     Dosage: 400 MILLIGRAM (0.5 DAY)
     Route: 048
     Dates: start: 20241003, end: 20241007

REACTIONS (1)
  - Neuropathy peripheral [Recovering/Resolving]

NARRATIVE: CASE EVENT DATE: 20240822
